FAERS Safety Report 22075047 (Version 1)
Quarter: 2023Q1

REPORT INFORMATION
  Report Type: Spontaneous
  Country: US (occurrence: US)
  Receive Date: 20230308
  Receipt Date: 20230308
  Transmission Date: 20230418
  Serious: No
  Sender: FDA-Public Use
  Company Number: US-ALLERGAN-2237080US

PATIENT
  Age: 20 Year
  Sex: Female

DRUGS (3)
  1. MESALAMINE [Suspect]
     Active Substance: MESALAMINE
     Indication: Colitis ulcerative
  2. HUMIRA [Suspect]
     Active Substance: ADALIMUMAB
     Indication: Colitis ulcerative
     Route: 058
  3. REMICADE [Concomitant]
     Active Substance: INFLIXIMAB

REACTIONS (6)
  - Stress [Unknown]
  - Frequent bowel movements [Unknown]
  - Acne [Unknown]
  - Alopecia [Unknown]
  - Colitis ulcerative [Unknown]
  - Drug ineffective [Unknown]
